FAERS Safety Report 9174295 (Version 1)
Quarter: 2013Q1

REPORT INFORMATION
  Report Type: Spontaneous
  Country: BR (occurrence: BR)
  Receive Date: 20130320
  Receipt Date: 20130320
  Transmission Date: 20140127
  Serious: Yes (Other)
  Sender: FDA-Public Use
  Company Number: PHHY2013BR025917

PATIENT
  Sex: Male
  Weight: 71 kg

DRUGS (5)
  1. DIOVAN HCT [Suspect]
     Indication: HYPERTENSION
     Dosage: 2 DF, (160 MG VALS AND 25 MG HYDR) DAILY
     Route: 048
  2. SINVASTATINA [Concomitant]
     Indication: BLOOD CHOLESTEROL INCREASED
     Dosage: 1 DF, DAILY (20 MG)
     Route: 048
  3. ASPIRINA PREVENT [Concomitant]
     Dosage: 1 DF, DAILY
     Route: 048
  4. CONCOR [Concomitant]
     Indication: CARDIAC DISORDER
     Dosage: 1 DF, DAILY (5 MG)
     Route: 048
  5. OMEPRAZOL//OMEPRAZOLE [Concomitant]
     Indication: ABDOMINAL DISCOMFORT
     Dosage: 1 DF, DAILY (20 MG)
     Route: 048

REACTIONS (1)
  - Heart valve incompetence [Recovered/Resolved]
